FAERS Safety Report 6747743-2 (Version None)
Quarter: 2010Q2

REPORT INFORMATION
  Report Type: 
  Country: None (occurrence: None)
  Receive Date: 20100528
  Receipt Date: 20100521
  Transmission Date: 20101027
  Serious: Yes (Other)
  Sender: FDA-Public Use
  Company Number: BE-GILEAD-2010-0029388

PATIENT
  Age: 59 Year
  Sex: Male

DRUGS (3)
  1. TRUVADA [Suspect]
     Indication: DRUG USE FOR UNKNOWN INDICATION
  2. NORVIR [Concomitant]
  3. REYATAZ [Concomitant]

REACTIONS (1)
  - EPILEPSY [None]
